FAERS Safety Report 8031490-3 (Version None)
Quarter: 2012Q1

REPORT INFORMATION
  Report Type: 
  Country: None (occurrence: None)
  Receive Date: 20120109
  Receipt Date: 20120103
  Transmission Date: 20120608
  Serious: Yes (Other)
  Sender: FDA-Public Use
  Company Number: US-BAYER-2011-036398

PATIENT
  Age: 41 Year
  Sex: Female
  Weight: 83.447 kg

DRUGS (4)
  1. YASMIN [Suspect]
     Indication: HORMONE LEVEL ABNORMAL
     Dosage: UNK
     Dates: start: 20040201, end: 20080701
  2. ONE-A-DAY [Concomitant]
     Dosage: UNK
  3. CIPRO XR [Concomitant]
     Dosage: UNK
     Dates: start: 20070506
  4. PROQUIN [Concomitant]
     Dosage: UNK
     Dates: start: 20070430

REACTIONS (8)
  - NEPHROLITHIASIS [None]
  - GALLBLADDER INJURY [None]
  - EMOTIONAL DISTRESS [None]
  - ANXIETY [None]
  - CHOLECYSTITIS CHRONIC [None]
  - NAUSEA [None]
  - ABDOMINAL PAIN UPPER [None]
  - PAIN [None]
